FAERS Safety Report 5129088-X (Version None)
Quarter: 2006Q4

REPORT INFORMATION
  Report Type: 
  Country: None (occurrence: None)
  Receive Date: 20061016
  Receipt Date: 20061016
  Transmission Date: 20070319
  Serious: Yes (Hospitalization)
  Sender: FDA-Public Use
  Company Number: None

PATIENT
  Age: 81 Year
  Sex: Female

DRUGS (1)
  1. PROPAFENONE HCL [Suspect]
     Indication: HYPERTENSION

REACTIONS (4)
  - DIZZINESS POSTURAL [None]
  - DRUG TOXICITY [None]
  - HYPOTENSION [None]
  - THERAPEUTIC RESPONSE UNEXPECTED WITH DRUG SUBSTITUTION [None]
